FAERS Safety Report 13332575 (Version 2)
Quarter: 2017Q1

REPORT INFORMATION
  Report Type: Spontaneous
  Country: FR (occurrence: FR)
  Receive Date: 20170314
  Receipt Date: 20170317
  Transmission Date: 20170428
  Serious: Yes (Hospitalization, Disabling)
  Sender: FDA-Public Use
  Company Number: FR-CONCORDIA PHARMACEUTICALS INC.-GSH201703-001667

PATIENT
  Age: 56 Year
  Sex: Male

DRUGS (17)
  1. TIMOFEROL [Concomitant]
     Active Substance: ASCORBIC ACID\FERROUS SULFATE
  2. KAYEXALATE [Suspect]
     Active Substance: SODIUM POLYSTYRENE SULFONATE
     Indication: HYPERKALAEMIA
     Route: 048
  3. INEXIUM [Concomitant]
     Active Substance: ESOMEPRAZOLE
  4. KARDEGIC [Concomitant]
     Active Substance: ASPIRIN LYSINE
  5. EZETROL [Concomitant]
     Active Substance: EZETIMIBE
  6. OROCAL D [Concomitant]
  7. HYPERIUM [Concomitant]
     Active Substance: RILMENIDINE PHOSPHATE
  8. NEORAL [Concomitant]
     Active Substance: CYCLOSPORINE
  9. CELLCEPT [Concomitant]
     Active Substance: MYCOPHENOLATE MOFETIL\MYCOPHENOLATE MOFETIL HYDROCHLORIDE
  10. SOLUPRED [Concomitant]
     Active Substance: PREDNISOLONE
  11. SODIUM BICARBONATE. [Concomitant]
     Active Substance: SODIUM BICARBONATE
  12. AMLOR [Concomitant]
     Active Substance: AMLODIPINE BESYLATE
  13. CORDARONE [Concomitant]
     Active Substance: AMIODARONE HYDROCHLORIDE
  14. PRAVASTATIN SODIUM. [Concomitant]
     Active Substance: PRAVASTATIN SODIUM
  15. BACTRIM [Concomitant]
     Active Substance: SULFAMETHOXAZOLE\TRIMETHOPRIM
  16. PRETERAX [Concomitant]
     Active Substance: INDAPAMIDE\PERINDOPRIL
  17. VASTAREL [Concomitant]
     Active Substance: TRIMETAZIDINE DIHYDROCHLORIDE

REACTIONS (3)
  - Cough [Recovered/Resolved]
  - Pneumonitis [Recovered/Resolved with Sequelae]
  - Pulmonary mass [Recovered/Resolved with Sequelae]
